FAERS Safety Report 9669865 (Version 2)
Quarter: 2013Q4

REPORT INFORMATION
  Report Type: Report from Study
  Country: KR (occurrence: KR)
  Receive Date: 20131105
  Receipt Date: 20131105
  Transmission Date: 20140711
  Serious: No
  Sender: FDA-Public Use
  Company Number: PHHY2012KR114614

PATIENT
  Age: 49 Year
  Sex: Female

DRUGS (5)
  1. AMN107 [Suspect]
     Indication: CHRONIC MYELOID LEUKAEMIA
     Dosage: 800 MG, QD
     Route: 048
     Dates: start: 20120726, end: 20120919
  2. AMN107 [Suspect]
     Dosage: 400 MG, QD
     Route: 048
     Dates: start: 20120920, end: 20121003
  3. AMN107 [Suspect]
     Dosage: 800 MG, QD
     Route: 048
     Dates: start: 20121024, end: 20130220
  4. ALPRAZOLAM [Concomitant]
     Indication: PANIC DISORDER
     Dosage: 0.25 MG, QD
     Route: 048
     Dates: start: 20101028
  5. ESCITALOPRAM [Concomitant]
     Indication: DEPRESSION
     Dosage: 5 MG, QD
     Route: 048
     Dates: start: 20101028

REACTIONS (1)
  - Rash [Recovered/Resolved]
